FAERS Safety Report 5311983-X (Version None)
Quarter: 2007Q2

REPORT INFORMATION
  Report Type: 
  Country: None (occurrence: None)
  Receive Date: 20070430
  Receipt Date: 20060327
  Transmission Date: 20071010
  Serious: No
  Sender: FDA-Public Use
  Company Number: 2006UW05314

PATIENT
  Age: 16 Month
  Sex: Male
  Weight: 10 kg

DRUGS (4)
  1. NEXIUM [Suspect]
     Route: 048
  2. POLY VI SOL [Concomitant]
  3. SINGULAIR [Concomitant]
  4. AZITHROMYCIN [Concomitant]

REACTIONS (1)
  - TOOTH DISCOLOURATION [None]
